FAERS Safety Report 6826027-8 (Version None)
Quarter: 2010Q3

REPORT INFORMATION
  Report Type: 
  Country: None (occurrence: None)
  Receive Date: 20100709
  Receipt Date: 20100630
  Transmission Date: 20110219
  Serious: Yes (Hospitalization)
  Sender: FDA-Public Use
  Company Number: FR-ASTRAZENECA-2010SE30525

PATIENT
  Age: 29148 Day
  Sex: Female

DRUGS (5)
  1. ATACAND [Suspect]
     Indication: HYPERTENSION
     Route: 048
  2. STABLON [Suspect]
     Indication: DEPRESSION
     Route: 048
  3. ISOPTIN [Suspect]
     Route: 048
  4. LEXOMIL [Concomitant]
  5. ADVIL LIQUI-GELS [Concomitant]

REACTIONS (2)
  - HYPERTENSIVE CRISIS [None]
  - HYPONATRAEMIA [None]
